FAERS Safety Report 10258517 (Version 1)
Quarter: 2014Q2

REPORT INFORMATION
  Report Type: Spontaneous
  Country: US (occurrence: None)
  Receive Date: 20140624
  Receipt Date: 20140624
  Transmission Date: 20141212
  Serious: Yes (Other)
  Sender: FDA-Public Use
  Company Number: None

PATIENT
  Age: 38 Year
  Sex: Female
  Weight: 65.77 kg

DRUGS (1)
  1. CIPROFLOXACIN HCL 500MG [Suspect]
     Indication: URINARY TRACT INFECTION
     Dosage: ONE PILL, TWICE DAILY, TAKEN BY MOUTH
     Route: 048
     Dates: start: 20140616, end: 20140616

REACTIONS (18)
  - Sleep disorder [None]
  - Nightmare [None]
  - Palpitations [None]
  - Tremor [None]
  - Convulsion [None]
  - Back pain [None]
  - Feeling abnormal [None]
  - Nervousness [None]
  - Anxiety [None]
  - Paraesthesia [None]
  - Pain in extremity [None]
  - Arthralgia [None]
  - Pain in extremity [None]
  - Pain [None]
  - Vitreous floaters [None]
  - Vision blurred [None]
  - Arthralgia [None]
  - Pain in extremity [None]
